FAERS Safety Report 8493267-4 (Version None)
Quarter: 2012Q2

REPORT INFORMATION
  Report Type: 
  Country: None (occurrence: None)
  Receive Date: 20120627
  Receipt Date: 20120615
  Transmission Date: 20120825
  Serious: Yes (Other)
  Sender: FDA-Public Use
  Company Number: DSA_58027_2012

PATIENT

DRUGS (2)
  1. THERAPEUTIC RADIOPHARMACEUTICALS [Suspect]
     Indication: RECTAL CANCER
     Dosage: (DF)
  2. FLUOROURACIL [Suspect]
     Indication: RECTAL CANCER
     Dosage: (DF)

REACTIONS (1)
  - FATIGUE [None]
